FAERS Safety Report 10640248 (Version 4)
Quarter: 2015Q2

REPORT INFORMATION
  Report Type: Spontaneous
  Country: CA (occurrence: CA)
  Receive Date: 20141209
  Receipt Date: 20150623
  Transmission Date: 20150821
  Serious: Yes (Hospitalization, Other)
  Sender: FDA-Public Use
  Company Number: CA-GSKJP-KK201215493GSK1550188SC003

PATIENT
  Age: 53 Year
  Sex: Female
  Weight: 89 kg

DRUGS (7)
  1. BENLYSTA [Suspect]
     Active Substance: BELIMUMAB
     Indication: SYSTEMIC LUPUS ERYTHEMATOSUS
     Dosage: 860 MG, Z
     Route: 042
     Dates: start: 20120326
  2. DIPHENHYDRAMINE [Concomitant]
     Active Substance: DIPHENHYDRAMINE
     Indication: PRODUCT USED FOR UNKNOWN INDICATION
     Route: 065
  3. BENLYSTA [Suspect]
     Active Substance: BELIMUMAB
     Dosage: 880 MG, UNK
     Route: 042
     Dates: start: 20120326
  4. HYDROXYCHLOROQUINE [Concomitant]
     Active Substance: HYDROXYCHLOROQUINE
     Indication: PRODUCT USED FOR UNKNOWN INDICATION
     Route: 065
  5. PREDNISONE. [Concomitant]
     Active Substance: PREDNISONE
     Indication: PRODUCT USED FOR UNKNOWN INDICATION
     Route: 065
  6. ACETAMINOPHEN. [Concomitant]
     Active Substance: ACETAMINOPHEN
     Indication: PRODUCT USED FOR UNKNOWN INDICATION
     Route: 065
  7. BENLYSTA [Suspect]
     Active Substance: BELIMUMAB
     Dosage: UNK
     Route: 042
     Dates: start: 20120326

REACTIONS (27)
  - Nasopharyngitis [Unknown]
  - Knee arthroplasty [Recovered/Resolved]
  - Pertussis [Recovered/Resolved]
  - Drug ineffective [Unknown]
  - Blood immunoglobulin G [Unknown]
  - Musculoskeletal discomfort [Unknown]
  - Arthralgia [Unknown]
  - Malaise [Unknown]
  - Musculoskeletal disorder [Unknown]
  - Antinuclear antibody positive [Unknown]
  - Joint swelling [Unknown]
  - Fatigue [Recovered/Resolved]
  - DNA antibody positive [Unknown]
  - Antiphospholipid antibodies [Unknown]
  - Blood immunoglobulin M [Unknown]
  - Asthenia [Recovered/Resolved]
  - Pleurisy [Unknown]
  - Oedema peripheral [Unknown]
  - Activities of daily living impaired [Recovered/Resolved]
  - Ligament rupture [Unknown]
  - Pain [Unknown]
  - Cough [Unknown]
  - Arthropathy [Unknown]
  - Hypoaesthesia [Unknown]
  - Arthritis [Unknown]
  - Lymphopenia [Unknown]
  - Butterfly rash [Unknown]

NARRATIVE: CASE EVENT DATE: 20120410
